FAERS Safety Report 4425654-5 (Version None)
Quarter: 2004Q3

REPORT INFORMATION
  Report Type: 
  Country: None (occurrence: None)
  Receive Date: 20040716
  Receipt Date: 20031029
  Transmission Date: 20050211
  Serious: Yes (Other)
  Sender: FDA-Public Use
  Company Number: HQWYE672431OCT03

PATIENT
  Age: 30 Month
  Sex: Male
  Weight: 13.62 kg

DRUGS (1)
  1. ADVIL [Suspect]
     Dosage: 18 TABLET 1X PER 1 DAY, ORAL
     Route: 048
     Dates: start: 20031021, end: 20031021

REACTIONS (2)
  - ABDOMINAL PAIN UPPER [None]
  - ACCIDENTAL OVERDOSE [None]
